FAERS Safety Report 15940015 (Version 6)
Quarter: 2019Q2

REPORT INFORMATION
  Report Type: Report from Study
  Country: JP (occurrence: JP)
  Receive Date: 20190208
  Receipt Date: 20190422
  Transmission Date: 20190711
  Serious: Yes (Hospitalization)
  Sender: FDA-Public Use
  Company Number: JP-EISAI MEDICAL RESEARCH-EC-2019-051591

PATIENT
  Age: 77 Year
  Sex: Male
  Weight: 73 kg

DRUGS (17)
  1. NIVOLUMAB [Suspect]
     Active Substance: NIVOLUMAB
     Indication: HEPATOCELLULAR CARCINOMA
     Route: 041
     Dates: start: 20190108, end: 20190203
  2. PROPETO [Concomitant]
  3. LENVATINIB [Suspect]
     Active Substance: LENVATINIB
     Indication: HEPATOCELLULAR CARCINOMA
     Route: 048
     Dates: start: 20190108, end: 20190203
  4. ALLOPURINOL. [Concomitant]
     Active Substance: ALLOPURINOL
  5. MOSAPRIDE CITRATE [Concomitant]
     Active Substance: MOSAPRIDE CITRATE
  6. ZINC OXIDE. [Concomitant]
     Active Substance: ZINC OXIDE
  7. ATELEC [Concomitant]
     Active Substance: CILNIDIPINE
  8. LIVACT [Concomitant]
     Active Substance: AMINO ACIDS
  9. TSUMURA MASHININGAN EXTRACT GRANULES FOR ETHICAL USE [Concomitant]
  10. NEXIUM [Concomitant]
     Active Substance: ESOMEPRAZOLE MAGNESIUM
  11. DERMOVATE SCALP [Concomitant]
     Active Substance: CLOBETASOL
  12. DOVOBET [Concomitant]
     Active Substance: BETAMETHASONE\CALCIPOTRIENE
  13. BROTIZOLAM [Concomitant]
     Active Substance: BROTIZOLAM
  14. ALMETA [Concomitant]
     Active Substance: ALCLOMETASONE DIPROPIONATE
  15. URSODEOXYCHOLIC ACID [Concomitant]
     Active Substance: URSODIOL
  16. DIOVAN [Concomitant]
     Active Substance: VALSARTAN
  17. GLYDIL [Concomitant]

REACTIONS (2)
  - Pyrexia [Recovered/Resolved]
  - Stevens-Johnson syndrome [Recovered/Resolved]

NARRATIVE: CASE EVENT DATE: 20190128
